FAERS Safety Report 6815333-9 (Version None)
Quarter: 2010Q3

REPORT INFORMATION
  Report Type: 
  Country: None (occurrence: None)
  Receive Date: 20100701
  Receipt Date: 20100701
  Transmission Date: 20110219
  Serious: Yes (Death, Hospitalization)
  Sender: FDA-Public Use
  Company Number: None

PATIENT
  Sex: Female
  Weight: 45.5 kg

DRUGS (7)
  1. GEMCITABINE HCL [Suspect]
     Indication: DIAGNOSTIC PROCEDURE
     Dosage: 100 MG/M2 DAY 1 OF 21 IV
     Route: 042
  2. ERLOTINIB [Suspect]
     Indication: DIAGNOSTIC PROCEDURE
     Dosage: 100 MG/M2 DAY 1-21 PO
     Route: 048
  3. ZOFRAN [Concomitant]
  4. ZANTAC [Concomitant]
  5. NORCO [Concomitant]
  6. COLACE [Concomitant]
  7. MEGACE [Concomitant]

REACTIONS (5)
  - DYSPNOEA [None]
  - GASTROINTESTINAL PERFORATION [None]
  - SEPSIS [None]
  - TACHYCARDIA [None]
  - UNRESPONSIVE TO STIMULI [None]
